FAERS Safety Report 11191296 (Version 3)
Quarter: 2015Q3

REPORT INFORMATION
  Report Type: Report from Study
  Country: PL (occurrence: PL)
  Receive Date: 20150616
  Receipt Date: 20150804
  Transmission Date: 20151125
  Serious: Yes (Other)
  Sender: FDA-Public Use
  Company Number: PL-ROCHE-1594267

PATIENT
  Age: 73 Year
  Sex: Male

DRUGS (4)
  1. MABTHERA [Suspect]
     Active Substance: RITUXIMAB
     Indication: RHEUMATOID ARTHRITIS
     Dosage: 10TH INFUSION, 2 WEEKS APART THEN 6 MONTHS BREAK
     Route: 042
     Dates: start: 20100510, end: 20141215
  2. METHOTREXATE [Concomitant]
     Active Substance: METHOTREXATE
  3. ENCORTON [Concomitant]
     Active Substance: PREDNISONE
  4. MAJAMIL [Concomitant]

REACTIONS (1)
  - Colon cancer [Not Recovered/Not Resolved]

NARRATIVE: CASE EVENT DATE: 20150603
